FAERS Safety Report 8958802 (Version 1)
Quarter: 2012Q4

REPORT INFORMATION
  Report Type: 
  Country: DE (occurrence: DE)
  Receive Date: 20121211
  Receipt Date: 20121211
  Transmission Date: 20130627
  Serious: Yes (Death, Hospitalization)
  Sender: FDA-Public Use
  Company Number: DE-VERTEX PHARMACEUTICALS INC.-2012-025928

PATIENT
  Sex: Female
  Weight: 109 kg

DRUGS (5)
  1. INCIVO [Suspect]
     Indication: HEPATITIS C
     Dosage: Dosage Form: Tablet, 375 mg
     Route: 048
     Dates: end: 20121106
  2. PEGASYS [Suspect]
     Indication: HEPATITIS C
     Dosage: Dosage Form: Unspecified
     Route: 058
     Dates: end: 20121101
  3. COPEGUS [Suspect]
     Indication: HEPATITIS C
     Dosage: Dosage Form: Unspecified, morning 3 evening 2
     Route: 048
     Dates: start: 20121106
  4. COPEGUS [Suspect]
     Dosage: Dosage Form: Unspecified, morning 3 evening 2
     Route: 048
     Dates: end: 20121106
  5. BERLININSULIN H BASAL [Concomitant]
     Indication: TYPE 2 DIABETES MELLITUS
     Dosage: Dosage Form: Unspecified
     Route: 058

REACTIONS (6)
  - Pancreatitis [Unknown]
  - Hepatic encephalopathy [Unknown]
  - Multimorbidity [Fatal]
  - Hepatic cirrhosis [Unknown]
  - Ascites [Unknown]
  - Coagulopathy [Unknown]
